FAERS Safety Report 7903049-7 (Version None)
Quarter: 2011Q4

REPORT INFORMATION
  Report Type: 
  Country: None (occurrence: None)
  Receive Date: 20111104
  Receipt Date: 20111026
  Transmission Date: 20120403
  Serious: Yes (Other)
  Sender: FDA-Public Use
  Company Number: 2011SP049714

PATIENT
  Sex: Female
  Weight: 85.2762 kg

DRUGS (5)
  1. AMLODIPINE BESYLATE [Concomitant]
  2. ANASTRAZOLE [Concomitant]
  3. AROMASIN [Concomitant]
  4. HYDROCHLOROTHIAZIDE [Suspect]
     Indication: HYPERTENSION
  5. MIRALAX [Suspect]
     Indication: CONSTIPATION
     Dosage: ;QOD;P0
     Dates: start: 20110901, end: 20111001

REACTIONS (9)
  - BLOOD POTASSIUM DECREASED [None]
  - BLOOD CHOLESTEROL INCREASED [None]
  - ASTHENIA [None]
  - DISCOMFORT [None]
  - INCORRECT DRUG ADMINISTRATION DURATION [None]
  - THERAPEUTIC RESPONSE DECREASED [None]
  - FEELING ABNORMAL [None]
  - DIZZINESS [None]
  - LOSS OF CONSCIOUSNESS [None]
